FAERS Safety Report 4520773-7 (Version None)
Quarter: 2004Q4

REPORT INFORMATION
  Report Type: 
  Country: None (occurrence: None)
  Receive Date: 20041028
  Receipt Date: 20040712
  Transmission Date: 20050328
  Serious: Yes (Other)
  Sender: FDA-Public Use
  Company Number: HQWYE188116JUL04

PATIENT
  Sex: Female

DRUGS (8)
  1. PREMARIN [Suspect]
     Indication: HORMONE REPLACEMENT THERAPY
     Dosage: ORAL
     Route: 048
  2. CRINONE [Suspect]
     Indication: HORMONE REPLACEMENT THERAPY
     Dosage: VAGINAL
     Route: 067
  3. ESTRADIOL [Suspect]
     Indication: HORMONE REPLACEMENT THERAPY
  4. ESTRIOL (ESTRIOL) [Suspect]
     Indication: HORMONE REPLACEMENT THERAPY
  5. ESTRONE [Suspect]
     Indication: HORMONE REPLACEMENT THERAPY
  6. PROGESTERONE [Suspect]
     Indication: HORMONE REPLACEMENT THERAPY
  7. PROMETRIUM [Suspect]
     Indication: HORMONE REPLACEMENT THERAPY
  8. PROVERA [Suspect]
     Indication: HORMONE REPLACEMENT THERAPY
     Dosage: ORAL
     Route: 048

REACTIONS (1)
  - BREAST CANCER [None]
